FAERS Safety Report 11020956 (Version 4)
Quarter: 2015Q4

REPORT INFORMATION
  Report Type: Report from Study
  Country: US (occurrence: US)
  Receive Date: 20150413
  Receipt Date: 20151007
  Transmission Date: 20160304
  Serious: Yes (Hospitalization)
  Sender: FDA-Public Use
  Company Number: US-SA-2015SA045677

PATIENT
  Age: 19 Year
  Sex: Female
  Weight: 53.52 kg

DRUGS (7)
  1. NEXPLANON [Concomitant]
     Active Substance: ETONOGESTREL
  2. TYLENOL [Concomitant]
     Active Substance: ACETAMINOPHEN
  3. IMPLANON [Concomitant]
     Active Substance: ETONOGESTREL
     Indication: CONTRACEPTION
     Route: 058
  4. TRAMADOL HYDROCHLORIDE. [Concomitant]
     Active Substance: TRAMADOL HYDROCHLORIDE
  5. FABRAZYME [Suspect]
     Active Substance: AGALSIDASE BETA
     Indication: FABRY^S DISEASE
     Dosage: ON 28-MAR-2015, PATIENT RECEIVED HER FABRAYME INFUSION OF 55 MG.
     Route: 041
     Dates: start: 20120515
  6. NEURONTIN [Concomitant]
     Active Substance: GABAPENTIN
  7. DIPHENHYDRAMINE HYDROCHLORIDE. [Concomitant]
     Active Substance: DIPHENHYDRAMINE HYDROCHLORIDE

REACTIONS (8)
  - Dysuria [Recovered/Resolved]
  - Retinal disorder [Not Recovered/Not Resolved]
  - Leukopenia [Recovered/Resolved]
  - Escherichia urinary tract infection [Recovered/Resolved]
  - Urinary tract infection enterococcal [Recovered/Resolved]
  - Flank pain [Recovered/Resolved]
  - Pyelonephritis [Recovered/Resolved]
  - Pyrexia [Recovered/Resolved]

NARRATIVE: CASE EVENT DATE: 20150328
